FAERS Safety Report 6672564-9 (Version None)
Quarter: 2010Q2

REPORT INFORMATION
  Report Type: 
  Country: None (occurrence: None)
  Receive Date: 20100408
  Receipt Date: 20100330
  Transmission Date: 20101027
  Serious: Yes (Other)
  Sender: FDA-Public Use
  Company Number: US-JNJFOC-20100400282

PATIENT
  Age: 43 Year
  Sex: Female
  Weight: 81.65 kg

DRUGS (4)
  1. EXTRA STRENGTH TYLENOL PM [Suspect]
     Indication: INSOMNIA
     Route: 048
  2. EXTRA STRENGTH TYLENOL PM [Suspect]
     Indication: PAIN
     Route: 048
  3. PROZAC [Concomitant]
  4. TOPAMAX [Concomitant]

REACTIONS (5)
  - INCORRECT DOSE ADMINISTERED [None]
  - MUSCULOSKELETAL CHEST PAIN [None]
  - NEPHROLITHIASIS [None]
  - PAIN [None]
  - PRODUCT QUALITY ISSUE [None]
